FAERS Safety Report 5605830-6 (Version None)
Quarter: 2008Q1

REPORT INFORMATION
  Report Type: 
  Country: None (occurrence: None)
  Receive Date: 20080129
  Receipt Date: 20080121
  Transmission Date: 20080703
  Serious: Yes (Other)
  Sender: FDA-Public Use
  Company Number: PHBS2007DK21095

PATIENT
  Age: 60 Year
  Sex: Female
  Weight: 62 kg

DRUGS (5)
  1. ZOMETA [Suspect]
     Indication: METASTASES TO BONE
     Dosage: 4 MG, TIW
     Route: 042
     Dates: start: 20061129, end: 20071008
  2. DOCETAXEL [Concomitant]
     Route: 042
  3. EPIRUBICIN [Concomitant]
     Indication: BREAST CANCER
     Dosage: 90 MG/M2/DAY
     Route: 042
     Dates: start: 20070815
  4. PANTOLOC [Concomitant]
     Dosage: 40 MG/DAY
  5. PARACETAMOL [Concomitant]
     Dosage: UNK, PRN

REACTIONS (1)
  - OSTEONECROSIS [None]
